FAERS Safety Report 16227421 (Version 2)
Quarter: 2019Q2

REPORT INFORMATION
  Report Type: Spontaneous
  Country: US (occurrence: US)
  Receive Date: 20190423
  Receipt Date: 20190504
  Transmission Date: 20190711
  Serious: Yes (Hospitalization, Other)
  Sender: FDA-Public Use
  Company Number: US-UNITED THERAPEUTICS-UNT-2019-006944

PATIENT
  Age: 51 Year
  Sex: Female
  Weight: 71.66 kg

DRUGS (2)
  1. REVATIO [Concomitant]
     Active Substance: SILDENAFIL CITRATE
     Indication: PRODUCT USED FOR UNKNOWN INDICATION
     Route: 065
  2. REMODULIN [Suspect]
     Active Substance: TREPROSTINIL
     Indication: PULMONARY ARTERIAL HYPERTENSION
     Dosage: 0.195 ?G/KG, CONTINUING
     Route: 058
     Dates: start: 20110726

REACTIONS (3)
  - Aneurysm [Unknown]
  - Post procedural complication [Unknown]
  - Hepatitis [Unknown]

NARRATIVE: CASE EVENT DATE: 20190414
